FAERS Safety Report 6050543-2 (Version None)
Quarter: 2009Q1

REPORT INFORMATION
  Report Type: 
  Country: None (occurrence: None)
  Receive Date: 20090122
  Receipt Date: 20090122
  Transmission Date: 20090719
  Serious: Yes (Hospitalization)
  Sender: FDA-Public Use
  Company Number: None

PATIENT
  Sex: Male
  Weight: 96.6162 kg

DRUGS (1)
  1. CETUXIMAB 2MG/ML BFRISTOL MYERS SQUIBB [Suspect]
     Indication: LUNG NEOPLASM MALIGNANT
     Dosage: 540 Q WEEK IV DRIP
     Route: 041

REACTIONS (3)
  - HYPOMAGNESAEMIA [None]
  - PNEUMONIA [None]
  - SUPRAVENTRICULAR TACHYCARDIA [None]
